FAERS Safety Report 21928485 (Version 1)
Quarter: 2023Q1

REPORT INFORMATION
  Report Type: Spontaneous
  Country: PA (occurrence: PA)
  Receive Date: 20230130
  Receipt Date: 20230130
  Transmission Date: 20230417
  Serious: Yes (Other)
  Sender: FDA-Public Use
  Company Number: PA-drreddys-SPO/PAN/23/0160351

PATIENT
  Age: 61 Year
  Sex: Female
  Weight: 64.9 kg

DRUGS (2)
  1. AZACITIDINE [Suspect]
     Active Substance: AZACITIDINE
     Indication: Myelodysplastic syndrome
     Dosage: DIVIDED INTO 65MG INJECTION 2 PER DAY?LYOPHILIZED POWDER VIAL FOR IV INJECTABLE SOLUTION BY INFUSION
  2. IMIPENEM [Concomitant]
     Active Substance: IMIPENEM
     Indication: Soft tissue infection
     Route: 042

REACTIONS (2)
  - Therapy non-responder [Unknown]
  - Neutrophil count abnormal [Recovering/Resolving]
